FAERS Safety Report 7465106-1 (Version None)
Quarter: 2011Q2

REPORT INFORMATION
  Report Type: 
  Country: None (occurrence: None)
  Receive Date: 20110509
  Receipt Date: 20100907
  Transmission Date: 20111010
  Serious: No
  Sender: FDA-Public Use
  Company Number: US-SANOFI-AVENTIS-2010SA056415

PATIENT
  Age: 60 Year
  Sex: Male

DRUGS (2)
  1. APIDRA [Suspect]
     Dosage: DOSAGE: SLIDING SCALE WITH MEALS.
     Route: 058
     Dates: start: 20070101
  2. OPTICLICK [Suspect]
     Dates: start: 20070101

REACTIONS (1)
  - VISUAL IMPAIRMENT [None]
